FAERS Safety Report 8440084-7 (Version None)
Quarter: 2012Q2

REPORT INFORMATION
  Report Type: 
  Country: None (occurrence: None)
  Receive Date: 20120615
  Receipt Date: 20120608
  Transmission Date: 20120825
  Serious: Yes (Hospitalization)
  Sender: FDA-Public Use
  Company Number: DE-ELI_LILLY_AND_COMPANY-DE201206002552

PATIENT
  Sex: Female

DRUGS (3)
  1. CALCIUM [Concomitant]
     Dosage: UNK, UNKNOWN
     Route: 065
  2. FORTEO [Suspect]
     Indication: FRACTURE
     Dosage: UNK, QD
     Route: 058
     Dates: start: 20110901
  3. VITAMIN D [Concomitant]

REACTIONS (7)
  - SURGERY [None]
  - MEDICAL DEVICE IMPLANTATION [None]
  - IMPAIRED HEALING [None]
  - OFF LABEL USE [None]
  - FOOT AMPUTATION [None]
  - INFECTION [None]
  - LOCALISED INFECTION [None]
